FAERS Safety Report 9505838 (Version 1)
Quarter: 2013Q1

REPORT INFORMATION
  Report Type: Spontaneous
  Country: US (occurrence: None)
  Receive Date: 20130226
  Receipt Date: 20130226
  Transmission Date: 20140127
  Serious: No
  Sender: FDA-Public Use
  Company Number: PHEH2012US007747

PATIENT
  Age: 50 Year
  Sex: Male

DRUGS (1)
  1. TOBI [Suspect]
     Indication: PNEUMONIA
     Dosage: 1DF, 300MG/5ML, INHALATION

REACTIONS (1)
  - Pneumonia [None]
